FAERS Safety Report 4633354-1 (Version None)
Quarter: 2005Q2

REPORT INFORMATION
  Report Type: 
  Country: None (occurrence: None)
  Receive Date: 20050412
  Receipt Date: 20050404
  Transmission Date: 20051028
  Serious: Yes (Other)
  Sender: FDA-Public Use
  Company Number: FRWYE556604APR05

PATIENT
  Age: 19 Year
  Sex: Female

DRUGS (5)
  1. EFFEXOR [Suspect]
     Indication: DEPRESSION
     Dosage: 50 MG 2X PER 1 DAY ORAL
     Route: 048
     Dates: start: 20050314, end: 20050402
  2. EFFEXOR [Suspect]
     Indication: SUICIDE ATTEMPT
     Dosage: 50 MG 2X PER 1 DAY ORAL
     Route: 048
     Dates: start: 20050314, end: 20050402
  3. PURINETHOL [Concomitant]
  4. PRAZOSIN GITS [Concomitant]
  5. NOCTAMID (LORMETAZEPAM) [Concomitant]

REACTIONS (3)
  - CYTOLYTIC HEPATITIS [None]
  - DRUG WITHDRAWAL SYNDROME [None]
  - PROTHROMBIN LEVEL DECREASED [None]
